FAERS Safety Report 6651027-0 (Version None)
Quarter: 2010Q1

REPORT INFORMATION
  Report Type: 
  Country: None (occurrence: None)
  Receive Date: 20100325
  Receipt Date: 20100317
  Transmission Date: 20100710
  Serious: Yes (Hospitalization)
  Sender: FDA-Public Use
  Company Number: AU-ALLERGAN-1003876US

PATIENT
  Age: 3 Month
  Sex: Male

DRUGS (2)
  1. COMBIGAN [Suspect]
     Indication: ACCIDENTAL EXPOSURE
     Dosage: 5 ML, SINGLE
     Route: 048
     Dates: start: 20080623, end: 20080623
  2. PREDNEFRIN FORTE [Suspect]
     Indication: ACCIDENTAL EXPOSURE
     Dosage: 5 ML, SINGLE
     Route: 048
     Dates: start: 20080623, end: 20080623

REACTIONS (1)
  - ACCIDENTAL EXPOSURE [None]
